FAERS Safety Report 22056638 (Version 1)
Quarter: 2023Q1

REPORT INFORMATION
  Report Type: Spontaneous
  Country: US (occurrence: US)
  Receive Date: 20230302
  Receipt Date: 20230302
  Transmission Date: 20230418
  Serious: Yes (Other)
  Sender: FDA-Public Use
  Company Number: US-NOVOPROD-1027349

PATIENT
  Sex: Female

DRUGS (1)
  1. NOVOLOG MIX 70/30 [Suspect]
     Active Substance: INSULIN ASPART
     Indication: Product used for unknown indication
     Dosage: 50 UNITS (YESTERDAY AND TODAY)
     Route: 058
     Dates: start: 20230214

REACTIONS (2)
  - Neoplasm malignant [Unknown]
  - Blood glucose increased [Not Recovered/Not Resolved]
